FAERS Safety Report 10889315 (Version 1)
Quarter: 2015Q1

REPORT INFORMATION
  Report Type: Spontaneous
  Country: FR (occurrence: FR)
  Receive Date: 20150305
  Receipt Date: 20150305
  Transmission Date: 20150721
  Serious: Yes (Hospitalization, Disabling)
  Sender: FDA-Public Use
  Company Number: FR-ASTRAZENECA-2014SE90960

PATIENT
  Age: 66 Year
  Sex: Female
  Weight: 46 kg

DRUGS (5)
  1. VENLAFAXINE [Concomitant]
     Active Substance: VENLAFAXINE HYDROCHLORIDE
  2. XEROQUEL [Suspect]
     Active Substance: QUETIAPINE FUMARATE
     Indication: BIPOLAR II DISORDER
     Route: 048
     Dates: start: 20130130, end: 20141119
  3. NOCTAMIDE [Concomitant]
     Active Substance: LORMETAZEPAM
  4. LORMETAZEPAM [Concomitant]
     Active Substance: LORMETAZEPAM
     Indication: SLEEP DISORDER
     Dates: start: 20111026
  5. XEROQUEL [Suspect]
     Active Substance: QUETIAPINE FUMARATE
     Indication: BIPOLAR II DISORDER
     Dosage: DOSE PROGRESSIVELY INCREASED FROM 50 MG PER DAY TO 300 MG PER DAY
     Route: 048
     Dates: start: 2012

REACTIONS (3)
  - Dysphagia [Unknown]
  - Mouth ulceration [Unknown]
  - Cheilitis [Unknown]

NARRATIVE: CASE EVENT DATE: 2014
